FAERS Safety Report 10648865 (Version 1)
Quarter: 2014Q4

REPORT INFORMATION
  Report Type: Spontaneous
  Country: US (occurrence: US)
  Receive Date: 20141212
  Receipt Date: 20141212
  Transmission Date: 20150529
  Serious: Yes (Other)
  Sender: FDA-Public Use
  Company Number: US-AMGEN-USASP2014095113

PATIENT
  Age: 56 Year
  Sex: Female
  Weight: 47.62 kg

DRUGS (1)
  1. ARANESP [Suspect]
     Active Substance: DARBEPOETIN ALFA
     Indication: NEPHROGENIC ANAEMIA
     Dosage: 40 MG, UNK
     Route: 065
     Dates: start: 201410

REACTIONS (5)
  - Nausea [Unknown]
  - Haematocrit decreased [Unknown]
  - Blood glucose increased [Unknown]
  - Hypoaesthesia oral [Unknown]
  - Haemoglobin decreased [Unknown]
